FAERS Safety Report 8598103-3 (Version None)
Quarter: 2012Q3

REPORT INFORMATION
  Report Type: 
  Country: None (occurrence: None)
  Receive Date: 20120816
  Receipt Date: 20120810
  Transmission Date: 20120928
  Serious: No
  Sender: FDA-Public Use
  Company Number: US-B.I. PHARMACEUTICALS,INC./RIDGEFIELD-2012-BP-18877BP

PATIENT
  Sex: Female

DRUGS (10)
  1. LISINOPRIL [Concomitant]
     Indication: BLOOD PRESSURE ABNORMAL
  2. SIMVASTATIN [Concomitant]
     Indication: BLOOD CHOLESTEROL ABNORMAL
  3. SPIRIVA [Suspect]
     Route: 048
     Dates: start: 20120810, end: 20120810
  4. AMITRIPTYLINE HCL [Concomitant]
     Indication: SLEEP DISORDER
  5. SPIRIVA [Suspect]
     Indication: CHRONIC OBSTRUCTIVE PULMONARY DISEASE
     Dosage: 18 MCG
     Route: 055
     Dates: start: 20120101
  6. CARVEDILOL [Concomitant]
     Indication: BLOOD PRESSURE ABNORMAL
  7. HYDROCODONE [Concomitant]
     Indication: PAIN
  8. FUROSEMIDE [Concomitant]
     Indication: FLUID RETENTION
  9. HUMULIN 70/30 [Concomitant]
     Indication: DIABETES MELLITUS
  10. FLUTICASONE PROPIONATE [Concomitant]
     Indication: CHRONIC OBSTRUCTIVE PULMONARY DISEASE

REACTIONS (1)
  - INCORRECT ROUTE OF DRUG ADMINISTRATION [None]
